FAERS Safety Report 5455697-4 (Version None)
Quarter: 2007Q3

REPORT INFORMATION
  Report Type: 
  Country: None (occurrence: None)
  Receive Date: 20070918
  Receipt Date: 20061107
  Transmission Date: 20080115
  Serious: Yes (Other)
  Sender: FDA-Public Use
  Company Number: US-ASTRAZENECA-2006UW22127

PATIENT
  Age: 12 Year
  Sex: Male

DRUGS (6)
  1. SEROQUEL [Suspect]
     Indication: AGITATION
     Dosage: LOW DOSES NEVER ABOUT 100 MG
     Route: 048
     Dates: start: 19990101, end: 20060401
  2. SEROQUEL [Suspect]
     Indication: AGGRESSION
     Dosage: LOW DOSES NEVER ABOUT 100 MG
     Route: 048
     Dates: start: 19990101, end: 20060401
  3. FORTALIN-PM [Concomitant]
  4. METHADATE CD [Concomitant]
  5. TRILEPTAL [Concomitant]
  6. INSULIN [Concomitant]

REACTIONS (2)
  - CONVULSION [None]
  - TYPE 1 DIABETES MELLITUS [None]
